FAERS Safety Report 9343386 (Version 1)
Quarter: 2013Q2

REPORT INFORMATION
  Report Type: Report from Study
  Country: US (occurrence: US)
  Receive Date: 20130612
  Receipt Date: 20130612
  Transmission Date: 20140414
  Serious: Yes (Other)
  Sender: FDA-Public Use
  Company Number: US-ASTRAZENECA-2013SE37756

PATIENT
  Age: 54 Year
  Sex: Female

DRUGS (17)
  1. SYMBICORT PMDI [Suspect]
     Dosage: 160/4.5 MICROGRAMS, TWO TIMES DAILY.
     Route: 055
  2. NEXIUM [Suspect]
     Indication: OESOPHAGEAL DISORDER
     Route: 048
     Dates: start: 201303, end: 201305
  3. NEXIUM [Suspect]
     Indication: GASTROINTESTINAL DISORDER
     Route: 048
     Dates: start: 201303, end: 201305
  4. NEXIUM [Suspect]
     Indication: OESOPHAGITIS
     Route: 048
     Dates: start: 201303, end: 201305
  5. TRAMADOL [Concomitant]
  6. GABAPENTIN [Concomitant]
  7. ACCUPRIL [Concomitant]
     Indication: BLOOD PRESSURE ABNORMAL
  8. CICLO BEN [Concomitant]
     Indication: NEUROPATHY PERIPHERAL
  9. ZOFRAN [Concomitant]
     Indication: NAUSEA
     Route: 048
  10. MICARDIS [Concomitant]
     Indication: HYPERTENSION
     Route: 048
  11. PRAMIPEXOLE [Concomitant]
     Indication: RESTLESS LEGS SYNDROME
     Route: 048
  12. NEURONTIN [Concomitant]
     Indication: PERIPHERAL NERVE LESION
     Route: 048
  13. FIORICET [Concomitant]
     Indication: HEADACHE
     Dosage: 500-25 MILLIGRAMS
     Route: 048
  14. TRAMADOL HCL [Concomitant]
     Indication: LIMB DISCOMFORT
     Route: 048
  15. KLONOPIN [Concomitant]
     Indication: NERVOUS SYSTEM DISORDER
     Route: 048
  16. CYCLOBIN [Concomitant]
     Route: 065
  17. VANCON [Concomitant]
     Indication: LIMB DISCOMFORT
     Route: 065

REACTIONS (16)
  - Fall [Recovered/Resolved]
  - Rectal haemorrhage [Unknown]
  - Dizziness [Not Recovered/Not Resolved]
  - Dyspnoea [Unknown]
  - Syncope [Unknown]
  - Abdominal pain upper [Not Recovered/Not Resolved]
  - Cold sweat [Unknown]
  - Diarrhoea [Unknown]
  - Sleep disorder due to general medical condition, insomnia type [Unknown]
  - Pain [Unknown]
  - Vomiting [Unknown]
  - Blood pressure increased [Unknown]
  - Headache [Unknown]
  - Nausea [Unknown]
  - Intentional drug misuse [Unknown]
  - Drug dose omission [Unknown]
